FAERS Safety Report 13006394 (Version 3)
Quarter: 2017Q1

REPORT INFORMATION
  Report Type: Report from Study
  Country: US (occurrence: US)
  Receive Date: 20161207
  Receipt Date: 20170323
  Transmission Date: 20170428
  Serious: Yes (Hospitalization, Other)
  Sender: FDA-Public Use
  Company Number: US-ACTELION-A-NJ2016-144866

PATIENT
  Age: 79 Year
  Sex: Female
  Weight: 86.17 kg

DRUGS (7)
  1. UPTRAVI [Suspect]
     Active Substance: SELEXIPAG
     Indication: PULMONARY ARTERIAL HYPERTENSION
     Dosage: 400 MCG, BID
     Route: 048
  2. UPTRAVI [Suspect]
     Active Substance: SELEXIPAG
     Dosage: 600 MCG, BID
     Route: 048
     Dates: end: 20170313
  3. OPSUMIT [Concomitant]
     Active Substance: MACITENTAN
     Dosage: UNK
     Route: 048
  4. SILDENAFIL. [Concomitant]
     Active Substance: SILDENAFIL
     Indication: PULMONARY ARTERIAL HYPERTENSION
  5. ELIQUIS [Concomitant]
     Active Substance: APIXABAN
  6. WARFARIN [Concomitant]
     Active Substance: WARFARIN
  7. UPTRAVI [Suspect]
     Active Substance: SELEXIPAG
     Dosage: 200 MCG, BID
     Route: 048
     Dates: start: 20161007

REACTIONS (17)
  - Insomnia [Unknown]
  - Headache [Unknown]
  - Loss of consciousness [Unknown]
  - Photophobia [Unknown]
  - Nausea [Unknown]
  - Diabetic neuropathy [Unknown]
  - Presyncope [Unknown]
  - Restlessness [Unknown]
  - Dizziness [Unknown]
  - Pain in jaw [Unknown]
  - Abdominal discomfort [Unknown]
  - Quality of life decreased [Unknown]
  - Vomiting [Unknown]
  - Restless legs syndrome [Unknown]
  - Fluid retention [Unknown]
  - Diarrhoea [Unknown]
  - Myalgia [Unknown]

NARRATIVE: CASE EVENT DATE: 20170307
